FAERS Safety Report 8106574-1 (Version None)
Quarter: 2012Q1

REPORT INFORMATION
  Report Type: 
  Country: None (occurrence: None)
  Receive Date: 20120130
  Receipt Date: 20120116
  Transmission Date: 20120608
  Serious: Yes (Hospitalization, Other)
  Sender: FDA-Public Use
  Company Number: WAES 1104USA00331

PATIENT
  Age: 79 Year
  Sex: Male

DRUGS (17)
  1. VELCADE [Suspect]
     Indication: MULTIPLE MYELOMA
     Dosage: 2.6 MG/UNK;IV
     Route: 042
     Dates: start: 20090227
  2. VELCADE [Suspect]
     Indication: MULTIPLE MYELOMA
     Dosage: 2.6 MG/UNK;IV
     Route: 042
     Dates: start: 20090410, end: 20090420
  3. PREDNISOLONE [Concomitant]
  4. SIMVASTATIN [Concomitant]
  5. MOVIPREP [Concomitant]
  6. ASPIRIN [Concomitant]
  7. RAMIPRIL [Concomitant]
  8. VELCADE [Suspect]
     Indication: MULTIPLE MYELOMA
     Dosage: 2.6 MG/UNK;IV
     Route: 042
     Dates: start: 20090127
  9. VELCADE [Suspect]
     Indication: MULTIPLE MYELOMA
     Dosage: 2.6 MG/UNK;IV
     Route: 042
     Dates: start: 20090501, end: 20090504
  10. GRANISETRON [Concomitant]
  11. DECADRON [Suspect]
     Indication: MULTIPLE MYELOMA
     Dosage: 20 MG/DAILY PO, 20 MG/UNK;PO, 20 MG/DAILY;PO, 20 MG/DAILY;PO
     Route: 048
     Dates: start: 20090501, end: 20090505
  12. DECADRON [Suspect]
     Indication: MULTIPLE MYELOMA
     Dosage: 20 MG/DAILY PO, 20 MG/UNK;PO, 20 MG/DAILY;PO, 20 MG/DAILY;PO
     Route: 048
     Dates: start: 20090227
  13. DECADRON [Suspect]
     Indication: MULTIPLE MYELOMA
     Dosage: 20 MG/DAILY PO, 20 MG/UNK;PO, 20 MG/DAILY;PO, 20 MG/DAILY;PO
     Route: 048
     Dates: start: 20090410, end: 20090421
  14. DECADRON [Suspect]
     Indication: MULTIPLE MYELOMA
     Dosage: 20 MG/DAILY PO, 20 MG/UNK;PO, 20 MG/DAILY;PO, 20 MG/DAILY;PO
     Route: 048
     Dates: start: 20090127
  15. ISOSORBIDE MONONITRATE [Concomitant]
  16. PERSANTIN [Concomitant]
  17. DOMPERIDONE [Concomitant]

REACTIONS (14)
  - LOWER RESPIRATORY TRACT INFECTION [None]
  - DEHYDRATION [None]
  - NAUSEA [None]
  - ORTHOSTATIC HYPOTENSION [None]
  - TOXICITY TO VARIOUS AGENTS [None]
  - HYPONATRAEMIA [None]
  - VOMITING [None]
  - CONSTIPATION [None]
  - FALL [None]
  - DIARRHOEA [None]
  - ABDOMINAL DISTENSION [None]
  - ABDOMINAL DISCOMFORT [None]
  - DIZZINESS POSTURAL [None]
  - GASTROOESOPHAGEAL REFLUX DISEASE [None]
